FAERS Safety Report 24637169 (Version 1)
Quarter: 2024Q4

REPORT INFORMATION
  Report Type: Spontaneous
  Country: CN (occurrence: CN)
  Receive Date: 20241119
  Receipt Date: 20241119
  Transmission Date: 20250114
  Serious: Yes (Other)
  Sender: BAYER HEALTHCARE PHARMACEUTICALS INC.
  Company Number: CN-BAYER-2024A164468

PATIENT
  Age: 62 Year
  Sex: Female
  Weight: 60 kg

DRUGS (3)
  1. AVELOX [Suspect]
     Active Substance: MOXIFLOXACIN HYDROCHLORIDE
     Indication: Central nervous system infection
     Dosage: 0.4 G, QD
     Route: 041
     Dates: start: 20241023, end: 20241111
  2. ACYCLOVIR [Suspect]
     Active Substance: ACYCLOVIR
     Indication: Central nervous system infection
     Dosage: 0.5 G, TID
     Route: 041
     Dates: start: 20241023, end: 20241106
  3. ENOXAPARIN SODIUM [Suspect]
     Active Substance: ENOXAPARIN SODIUM
     Indication: Central nervous system infection
     Dosage: 0.4 ML, ONCE
     Route: 058
     Dates: start: 20241025, end: 20241106

REACTIONS (3)
  - Transaminases increased [Recovering/Resolving]
  - Product use in unapproved indication [None]
  - Product prescribing issue [None]

NARRATIVE: CASE EVENT DATE: 20241023
